FAERS Safety Report 10214410 (Version 1)
Quarter: 2014Q2

REPORT INFORMATION
  Report Type: Report from Study
  Country: US (occurrence: US)
  Receive Date: 20140603
  Receipt Date: 20140603
  Transmission Date: 20141212
  Serious: Yes (Other)
  Sender: FDA-Public Use
  Company Number: US-GILEAD-2014-0103315

PATIENT
  Age: 62 Year
  Sex: Male

DRUGS (4)
  1. SOFOSBUVIR [Suspect]
     Indication: CHRONIC HEPATITIS C
     Dosage: 400 MG, UNK
     Route: 065
     Dates: start: 20140409
  2. SIMEPREVIR [Suspect]
     Indication: CHRONIC HEPATITIS C
     Route: 065
  3. FUROSEMIDE [Concomitant]
  4. VITAMIN E NOS [Concomitant]

REACTIONS (5)
  - Mental impairment [Unknown]
  - Fatigue [Unknown]
  - Dyspnoea [Unknown]
  - Abdominal distension [Unknown]
  - Off label use [Recovered/Resolved]
